FAERS Safety Report 4637711-9 (Version None)
Quarter: 2005Q2

REPORT INFORMATION
  Report Type: 
  Country: None (occurrence: None)
  Receive Date: 20050418
  Receipt Date: 20050324
  Transmission Date: 20051028
  Serious: Yes (Hospitalization)
  Sender: FDA-Public Use
  Company Number: PHEH2005US03576

PATIENT
  Age: 59 Year
  Sex: Male

DRUGS (5)
  1. ZOMETA [Suspect]
     Indication: PROSTATE CANCER
     Dosage: 4MG QMO
     Route: 042
     Dates: start: 20040301, end: 20041201
  2. LUPRON [Concomitant]
     Indication: PROSTATE CANCER
     Dosage: 4MO DEPOT
     Dates: start: 20040101
  3. CASODEX [Concomitant]
  4. CELEBREX [Concomitant]
  5. EFFEXOR [Concomitant]
     Indication: HOT FLUSH
     Dosage: 75MG QD
     Dates: start: 20040301

REACTIONS (6)
  - INFLUENZA LIKE ILLNESS [None]
  - NEPHROLITHIASIS [None]
  - RENAL STONE REMOVAL [None]
  - URINE CALCIUM INCREASED [None]
  - URINE PHOSPHATE ABNORMAL [None]
  - URINE SODIUM INCREASED [None]
